FAERS Safety Report 10208773 (Version 2)
Quarter: 2014Q3

REPORT INFORMATION
  Report Type: Spontaneous
  Country: US (occurrence: US)
  Receive Date: 20140530
  Receipt Date: 20140918
  Transmission Date: 20150326
  Serious: Yes (Other)
  Sender: FDA-Public Use
  Company Number: US-AMGEN-USASP2014038543

PATIENT
  Age: 63 Year
  Sex: Female

DRUGS (15)
  1. DOMPERIDONE [Concomitant]
     Active Substance: DOMPERIDONE
  2. LEXAPRO                            /01588501/ [Concomitant]
     Dosage: 10 MG, QD
  3. PROLIA [Suspect]
     Active Substance: DENOSUMAB
     Indication: OSTEOPENIA
     Dosage: UNK
     Route: 065
     Dates: start: 2011
  4. CALCIUM [Concomitant]
     Active Substance: CALCIUM
     Dosage: 600 MG, BID
  5. FLUTICASONE [Concomitant]
     Active Substance: FLUTICASONE\FLUTICASONE PROPIONATE
     Route: 045
  6. GLIMEPIRIDE. [Concomitant]
     Active Substance: GLIMEPIRIDE
  7. ASPIRIN. [Concomitant]
     Active Substance: ASPIRIN
     Dosage: 81 MG, QD
  8. OMEPRAZOLE. [Concomitant]
     Active Substance: OMEPRAZOLE
  9. JANUVIA [Concomitant]
     Active Substance: SITAGLIPTIN PHOSPHATE
     Dosage: 100 MG, QD
  10. URSODIOL. [Concomitant]
     Active Substance: URSODIOL
     Dosage: 300 MG, BID
  11. ZOCOR [Concomitant]
     Active Substance: SIMVASTATIN
     Dosage: 40 MG, QD
  12. VITAMIN D                          /00107901/ [Concomitant]
     Active Substance: ERGOCALCIFEROL
     Dosage: 1000 IU, BID
  13. LISINOPRIL. [Concomitant]
     Active Substance: LISINOPRIL
     Dosage: 10 MG, QD
  14. SYNTHROID [Concomitant]
     Active Substance: LEVOTHYROXINE SODIUM
     Dosage: 75 MUG, QD
  15. PROBIOTIC                          /06395501/ [Concomitant]

REACTIONS (10)
  - Bursitis [Unknown]
  - Fall [Unknown]
  - Upper limb fracture [Recovered/Resolved]
  - Muscle rupture [Recovered/Resolved]
  - Arthralgia [Recovered/Resolved]
  - Blood glucose abnormal [Unknown]
  - Pollakiuria [Unknown]
  - Bone pain [Recovered/Resolved]
  - Back pain [Unknown]
  - Trigger finger [Unknown]

NARRATIVE: CASE EVENT DATE: 2011
